FAERS Safety Report 9538513 (Version 1)
Quarter: 2013Q2

REPORT INFORMATION
  Report Type: Spontaneous
  Country: US (occurrence: None)
  Receive Date: 20130510
  Receipt Date: 20130510
  Transmission Date: 20140414
  Serious: Yes (Other)
  Sender: FDA-Public Use
  Company Number: US-010843

PATIENT
  Age: 70 Year
  Sex: Male
  Weight: 72.58 kg

DRUGS (4)
  1. PICO-SALIX [Suspect]
     Indication: BOWEL PREPARATION
     Dosage: (TOOK FIRST DOSE AT 3PM FOLLOWED BY 5 GLASSES WATER, THEN AT 9PM LAST NIGHT FOLLOWED BY 3 GLASSES)
     Dates: start: 20130205
  2. SIMVASTATIN [Concomitant]
  3. TRICOR /00499301/ [Concomitant]
  4. SERTRALINE [Concomitant]

REACTIONS (1)
  - Drug ineffective [None]
